FAERS Safety Report 7357116-X (Version None)
Quarter: 2011Q1

REPORT INFORMATION
  Report Type: 
  Country: None (occurrence: None)
  Receive Date: 20110310
  Receipt Date: 20110310
  Transmission Date: 20110831
  Serious: Yes (Hospitalization)
  Sender: FDA-Public Use
  Company Number: None

PATIENT
  Age: 69 Year
  Sex: Male
  Weight: 81.6 kg

DRUGS (1)
  1. WARFARIN SODIUM [Suspect]
     Indication: DEEP VEIN THROMBOSIS
     Dosage: 2.5 MG OTHER PO
     Route: 048
     Dates: start: 20100517, end: 20100722

REACTIONS (3)
  - GASTRIC ULCER HAEMORRHAGE [None]
  - ANAEMIA [None]
  - HAEMORRHAGE [None]
